FAERS Safety Report 6668224-0 (Version None)
Quarter: 2010Q2

REPORT INFORMATION
  Report Type: 
  Country: None (occurrence: None)
  Receive Date: 20100406
  Receipt Date: 20100323
  Transmission Date: 20101027
  Serious: Yes (Other)
  Sender: FDA-Public Use
  Company Number: US-JNJFOC-20091106112

PATIENT
  Sex: Female

DRUGS (19)
  1. LEVAQUIN [Suspect]
     Indication: UPPER RESPIRATORY TRACT INFECTION
     Route: 048
  2. LEVAQUIN [Suspect]
     Route: 048
  3. LEVAQUIN [Suspect]
     Route: 048
  4. LEVAQUIN [Suspect]
     Route: 048
  5. LEVAQUIN [Suspect]
     Indication: SINUSITIS
     Route: 048
  6. LEVAQUIN [Suspect]
     Route: 048
  7. LEVAQUIN [Suspect]
     Route: 048
  8. LEVAQUIN [Suspect]
     Route: 048
  9. LEVAQUIN [Suspect]
     Indication: COUGH
     Route: 048
  10. LEVAQUIN [Suspect]
     Route: 048
  11. LEVAQUIN [Suspect]
     Route: 048
  12. LEVAQUIN [Suspect]
     Route: 048
  13. LEVAQUIN [Suspect]
     Indication: BRONCHITIS
     Route: 048
  14. LEVAQUIN [Suspect]
     Route: 048
  15. LEVAQUIN [Suspect]
     Route: 048
  16. LEVAQUIN [Suspect]
     Route: 048
  17. PREDNISONE TAB [Suspect]
     Indication: ANTIINFLAMMATORY THERAPY
     Route: 065
  18. PREDNISONE TAB [Suspect]
     Route: 065
  19. PREDNISONE TAB [Suspect]
     Route: 065

REACTIONS (2)
  - TENDONITIS [None]
  - TENOSYNOVITIS [None]
